FAERS Safety Report 8781825 (Version 1)
Quarter: 2012Q4

REPORT INFORMATION
  Report Type: 
  Country: BR (occurrence: BR)
  Receive Date: 20120913
  Receipt Date: 20120913
  Transmission Date: 20130627
  Serious: Yes (Life-Threatening, Hospitalization)
  Sender: FDA-Public Use
  Company Number: BR-COVIDIEN/TYCO HEALTHCARE/MALLINCKRODT-T201203387

PATIENT
  Age: 3 Year
  Sex: Male
  Weight: 12 kg

DRUGS (1)
  1. OPTIRAY [Suspect]
     Indication: COMPUTERISED TOMOGRAM
     Dosage: 25 ml, single
     Route: 042
     Dates: start: 20120618, end: 20120618

REACTIONS (3)
  - Cardiac arrest [Recovered/Resolved]
  - Bronchospasm [Recovered/Resolved]
  - Rash [Recovered/Resolved]
